FAERS Safety Report 9011665 (Version 4)
Quarter: 2013Q4

REPORT INFORMATION
  Report Type: Report from Study
  Country: GB (occurrence: GB)
  Receive Date: 20130111
  Receipt Date: 20131111
  Transmission Date: 20140711
  Serious: Yes (Other)
  Sender: FDA-Public Use
  Company Number: GB-JNJFOC-20121208650

PATIENT
  Age: 50 Year
  Sex: Male
  Weight: 108.3 kg

DRUGS (3)
  1. STELARA [Suspect]
     Indication: PSORIATIC ARTHROPATHY
     Dosage: PATIENT RECEIVED TOTAL OF 3 INJECTIONS
     Route: 058
     Dates: start: 20120823
  2. ASPIRIN [Concomitant]
     Indication: DIABETES MELLITUS
     Route: 048
     Dates: start: 20120906
  3. SIMVASTATIN [Concomitant]
     Indication: DIABETES MELLITUS
     Route: 048
     Dates: start: 20120906

REACTIONS (1)
  - Sarcoidosis [Recovered/Resolved]
